FAERS Safety Report 11286775 (Version 1)
Quarter: 2015Q3

REPORT INFORMATION
  Report Type: Spontaneous
  Country: US (occurrence: None)
  Receive Date: 20150720
  Receipt Date: 20150720
  Transmission Date: 20151125
  Serious: No
  Sender: FDA-Public Use
  Company Number: None

PATIENT
  Age: 45 Year
  Sex: Male
  Weight: 117.94 kg

DRUGS (10)
  1. FLUOXETINE [Concomitant]
     Active Substance: FLUOXETINE\FLUOXETINE HYDROCHLORIDE
  2. FLOVENT HFA [Concomitant]
     Active Substance: FLUTICASONE PROPIONATE
  3. ATENOLOL. [Concomitant]
     Active Substance: ATENOLOL
  4. HYDROXYZINE PAM [Concomitant]
  5. OMEPRAZOLE. [Concomitant]
     Active Substance: OMEPRAZOLE
  6. ALPRAZOLAM. [Concomitant]
     Active Substance: ALPRAZOLAM
  7. ACETAMINOPHEN. [Concomitant]
     Active Substance: ACETAMINOPHEN
  8. ROBAXIN [Concomitant]
     Active Substance: METHOCARBAMOL
  9. TOPIRAMATE. [Suspect]
     Active Substance: TOPIRAMATE
     Indication: NEURALGIA
     Route: 048
  10. IBUPROFEN. [Concomitant]
     Active Substance: IBUPROFEN

REACTIONS (9)
  - Dizziness [None]
  - Tremor [None]
  - Hypersensitivity [None]
  - Suffocation feeling [None]
  - Vision blurred [None]
  - Nausea [None]
  - Panic attack [None]
  - Heart rate increased [None]
  - Abdominal pain [None]

NARRATIVE: CASE EVENT DATE: 20150717
